FAERS Safety Report 4977108-5 (Version None)
Quarter: 2006Q1

REPORT INFORMATION
  Report Type: 
  Country: None (occurrence: None)
  Receive Date: 20060223
  Receipt Date: 20050711
  Transmission Date: 20060701
  Serious: Yes (Other)
  Sender: FDA-Public Use
  Company Number: 032-17

PATIENT
  Age: 70 Year
  Sex: Female
  Weight: 50.8029 kg

DRUGS (1)
  1. TEVETEN [Suspect]
     Indication: HYPERTENSION
     Dosage: 600 MG QAM PO
     Route: 048

REACTIONS (4)
  - BLOOD PRESSURE DECREASED [None]
  - DIPLOPIA [None]
  - MYALGIA [None]
  - VERTIGO [None]
